FAERS Safety Report 21124840 (Version 1)
Quarter: 2022Q3

REPORT INFORMATION
  Report Type: Spontaneous
  Country: US (occurrence: US)
  Receive Date: 20220725
  Receipt Date: 20220725
  Transmission Date: 20221027
  Serious: Yes (Hospitalization, Other)
  Sender: FDA-Public Use
  Company Number: US-CIPLA LTD.-2022US04512

PATIENT
  Age: 71 Year
  Sex: Male

DRUGS (1)
  1. WARFARIN [Suspect]
     Active Substance: WARFARIN
     Indication: Aortic valve disease
     Dosage: UNK
     Route: 065

REACTIONS (3)
  - Cerebral mass effect [Recovering/Resolving]
  - Subdural haematoma [Recovering/Resolving]
  - Anticoagulation drug level above therapeutic [Recovering/Resolving]
